FAERS Safety Report 8809968 (Version 2)
Quarter: 2012Q4

REPORT INFORMATION
  Report Type: 
  Country: ZA (occurrence: ZA)
  Receive Date: 20120926
  Receipt Date: 20121022
  Transmission Date: 20130627
  Serious: Yes (Life-Threatening, Hospitalization, Other)
  Sender: FDA-Public Use
  Company Number: ZA-009507513-1208ZAF007895

PATIENT
  Age: 31 Year
  Sex: Female
  Weight: 88 kg

DRUGS (4)
  1. ESMERON [Suspect]
     Indication: GENERAL ANAESTHESIA
     Dosage: 30 ml once, (0.5 mg/kg), 10 mg/mL
     Route: 040
  2. DIPRIVAN [Concomitant]
     Indication: GENERAL ANAESTHESIA
     Dosage: 200 mg,qd
     Route: 041
     Dates: start: 20120720
  3. SUFENTANIL [Concomitant]
     Dosage: 10 Microgram, qd
     Route: 042
     Dates: start: 20120720
  4. SEREVENT [Concomitant]

REACTIONS (5)
  - Cardiac arrest [Recovered/Resolved]
  - Endotracheal intubation [Unknown]
  - Anaphylactic reaction [Recovered/Resolved]
  - Bronchospasm [Recovered/Resolved]
  - Laparoscopy [Unknown]
